FAERS Safety Report 5204198-7 (Version None)
Quarter: 2007Q1

REPORT INFORMATION
  Report Type: 
  Country: None (occurrence: None)
  Receive Date: 20070110
  Receipt Date: 20060106
  Transmission Date: 20070707
  Serious: Yes (Other)
  Sender: FDA-Public Use
  Company Number: US-BRISTOL-MYERS SQUIBB COMPANY-13239348

PATIENT
  Age: 28 Year
  Sex: Female
  Weight: 127 kg

DRUGS (3)
  1. ABILIFY [Suspect]
     Indication: AGITATION
     Route: 048
     Dates: start: 20050105
  2. PAXIL [Concomitant]
  3. WELLBUTRIN [Concomitant]
     Dates: start: 20050105

REACTIONS (4)
  - DYSPHAGIA [None]
  - HYPERHIDROSIS [None]
  - POLLAKIURIA [None]
  - TREMOR [None]
